FAERS Safety Report 6701848-0 (Version None)
Quarter: 2010Q2

REPORT INFORMATION
  Report Type: 
  Country: None (occurrence: None)
  Receive Date: 20100429
  Receipt Date: 20100423
  Transmission Date: 20101027
  Serious: Yes (Hospitalization, Other)
  Sender: FDA-Public Use
  Company Number: JP-BAYER-200912455BYL

PATIENT
  Age: 42 Year
  Sex: Male
  Weight: 95 kg

DRUGS (8)
  1. NEXAVAR [Suspect]
     Indication: RENAL CELL CARCINOMA
     Dosage: TOTAL DAILY DOSE: 800 MG  UNIT DOSE: 200 MG
     Route: 048
     Dates: start: 20090701, end: 20090713
  2. NEXAVAR [Suspect]
     Dosage: UNIT DOSE: 200 MG
     Route: 048
     Dates: start: 20090721, end: 20090730
  3. NEXAVAR [Suspect]
     Dosage: UNIT DOSE: 200 MG
     Route: 048
     Dates: start: 20090731, end: 20090810
  4. NEXAVAR [Suspect]
     Dosage: TOTAL DAILY DOSE: 800 MG  UNIT DOSE: 200 MG
     Route: 048
     Dates: start: 20090811
  5. LORFENAMIN [Concomitant]
     Indication: CANCER PAIN
     Route: 048
     Dates: start: 20090619, end: 20090811
  6. MUCOSTA [Concomitant]
     Indication: PROPHYLAXIS AGAINST GASTROINTESTINAL ULCER
     Route: 048
     Dates: start: 20090619, end: 20090811
  7. RINLAXER [Concomitant]
     Indication: MYALGIA
     Route: 048
     Dates: start: 20090619, end: 20090811
  8. OLMESARTAN MEDOXOMIL [Concomitant]
     Route: 048
     Dates: start: 20090619, end: 20090811

REACTIONS (8)
  - BLOOD BILIRUBIN INCREASED [None]
  - CONSTIPATION [None]
  - DYSPHONIA [None]
  - ERYTHEMA [None]
  - PLATELET COUNT DECREASED [None]
  - RASH [None]
  - WEIGHT DECREASED [None]
  - WHITE BLOOD CELL COUNT DECREASED [None]
